FAERS Safety Report 7083357-5 (Version None)
Quarter: 2010Q4

REPORT INFORMATION
  Report Type: 
  Country: None (occurrence: None)
  Receive Date: 20101104
  Receipt Date: 20101101
  Transmission Date: 20110411
  Serious: Yes (Hospitalization, Other)
  Sender: FDA-Public Use
  Company Number: GR-ROXANE LABORATORIES, INC.-2010-RO-01439RO

PATIENT
  Age: 64 Year
  Sex: Female

DRUGS (4)
  1. AZATHIOPRINE [Suspect]
     Indication: COLITIS ULCERATIVE
  2. MESALAZINE [Suspect]
     Indication: COLITIS ULCERATIVE
  3. CORTICOSTEROIDS [Suspect]
     Indication: COLITIS ULCERATIVE
  4. PREDNIZOLONE [Suspect]
     Indication: COLITIS ULCERATIVE
     Dosage: 50 MG
     Route: 042

REACTIONS (2)
  - COLITIS ULCERATIVE [None]
  - MENINGITIS LISTERIA [None]
